FAERS Safety Report 6944455-7 (Version None)
Quarter: 2010Q3

REPORT INFORMATION
  Report Type: 
  Country: None (occurrence: None)
  Receive Date: 20100827
  Receipt Date: 20100818
  Transmission Date: 20110219
  Serious: Yes (Other)
  Sender: FDA-Public Use
  Company Number: BR-PFIZER INC-2010081532

PATIENT
  Age: 23 Year
  Sex: Female

DRUGS (1)
  1. CHAMPIX [Suspect]
     Indication: TOBACCO ABUSE
     Dosage: UNK
     Route: 048
     Dates: start: 20100519, end: 20100101

REACTIONS (2)
  - EUPHORIC MOOD [None]
  - PSYCHIATRIC SYMPTOM [None]
